FAERS Safety Report 20882448 (Version 1)
Quarter: 2022Q2

REPORT INFORMATION
  Report Type: Spontaneous
  Country: DK (occurrence: DK)
  Receive Date: 20220527
  Receipt Date: 20220527
  Transmission Date: 20220720
  Serious: Yes (Death, Hospitalization)
  Sender: FDA-Public Use
  Company Number: None

PATIENT
  Age: 73 Year
  Sex: Female

DRUGS (1)
  1. VINORELBINE TARTRATE [Suspect]
     Active Substance: VINORELBINE TARTRATE
     Indication: Lung neoplasm malignant
     Dosage: DOSAGE AND STRENGTH: UNKNOWN ?LATEST DOSE ADMINISTRATED ON 23OCT2019.
     Route: 065
     Dates: start: 20191021

REACTIONS (11)
  - Oropharyngeal pain [Fatal]
  - Malaise [Fatal]
  - Fatigue [Fatal]
  - Cardiovascular disorder [Fatal]
  - Sepsis [Fatal]
  - Dizziness [Fatal]
  - Speech disorder [Fatal]
  - Dysphonia [Fatal]
  - Vomiting [Fatal]
  - Dyspnoea [Fatal]
  - Diarrhoea [Fatal]

NARRATIVE: CASE EVENT DATE: 20191001
